FAERS Safety Report 9553934 (Version 1)
Quarter: 2013Q3

REPORT INFORMATION
  Report Type: Spontaneous
  Country: US (occurrence: None)
  Receive Date: 20130924
  Receipt Date: 20130924
  Transmission Date: 20140515
  Serious: Yes (Death, Hospitalization, Disabling)
  Sender: FDA-Public Use
  Company Number: None

PATIENT
  Age: 79 Year
  Sex: Female
  Weight: 92.99 kg

DRUGS (1)
  1. KYPROLIS (CARFILZOMIB) [Suspect]
     Indication: PLASMA CELL MYELOMA
     Route: 042
     Dates: start: 20130409, end: 20130417

REACTIONS (4)
  - Platelet count decreased [None]
  - Anaemia [None]
  - Neoplasm malignant [None]
  - Condition aggravated [None]
